FAERS Safety Report 5101987-4 (Version None)
Quarter: 2006Q3

REPORT INFORMATION
  Report Type: 
  Country: None (occurrence: None)
  Receive Date: 20060907
  Receipt Date: 20060826
  Transmission Date: 20061208
  Serious: Yes (Other)
  Sender: FDA-Public Use
  Company Number: 2006097553

PATIENT
  Age: 98 Year
  Sex: Female

DRUGS (1)
  1. DETROL [Suspect]
     Indication: DRUG USE FOR UNKNOWN INDICATION
     Dates: start: 20020101, end: 20020101

REACTIONS (1)
  - NEUROGENIC BLADDER [None]
